FAERS Safety Report 21371403 (Version 2)
Quarter: 2023Q1

REPORT INFORMATION
  Report Type: Spontaneous
  Country: US (occurrence: US)
  Receive Date: 20220923
  Receipt Date: 20230118
  Transmission Date: 20230417
  Serious: No
  Sender: FDA-Public Use
  Company Number: US-PFIZER INC-202201042114

PATIENT
  Age: 71 Year
  Sex: Female
  Weight: 62.132 kg

DRUGS (2)
  1. IBRANCE [Suspect]
     Active Substance: PALBOCICLIB
     Indication: Breast cancer stage IV
     Dosage: 125 MG, CYCLIC (PER DAY FOR 21 DAYS)
     Dates: start: 201704
  2. FULVESTRANT [Concomitant]
     Active Substance: FULVESTRANT
     Dosage: UNK
     Dates: start: 201704

REACTIONS (2)
  - Fatigue [Unknown]
  - Hyperhidrosis [Unknown]
